FAERS Safety Report 22811399 (Version 3)
Quarter: 2023Q4

REPORT INFORMATION
  Report Type: Spontaneous
  Country: JP (occurrence: JP)
  Receive Date: 20230810
  Receipt Date: 20231128
  Transmission Date: 20240110
  Serious: Yes (Hospitalization)
  Sender: FDA-Public Use
  Company Number: JP-TAIHO-2023-006475

PATIENT
  Age: 8 Decade
  Sex: Male

DRUGS (3)
  1. ABRAXANE [Suspect]
     Active Substance: PACLITAXEL
     Indication: Lung neoplasm malignant
     Dosage: NI
     Route: 041
     Dates: end: 20230803
  2. KEYTRUDA [Suspect]
     Active Substance: PEMBROLIZUMAB
     Indication: Lung neoplasm malignant
     Dosage: NI, MAINTENANCE THERAPY
  3. HERBALS [Suspect]
     Active Substance: HERBALS
     Indication: Product used for unknown indication
     Dosage: NI, MAINTENANCE THERAPY
     Route: 048

REACTIONS (5)
  - Blood potassium decreased [Unknown]
  - Muscular weakness [Unknown]
  - Asthenia [Unknown]
  - Blood calcium decreased [Unknown]
  - Pseudoaldosteronism [Unknown]
